FAERS Safety Report 14808302 (Version 1)
Quarter: 2018Q2

REPORT INFORMATION
  Report Type: Report from Study
  Country: US (occurrence: US)
  Receive Date: 20180425
  Receipt Date: 20180425
  Transmission Date: 20180711
  Serious: No
  Sender: FDA-Public Use
  Company Number: US-AMGEN-USASL2018012180

PATIENT
  Age: 71 Year
  Sex: Male

DRUGS (1)
  1. REPATHA [Suspect]
     Active Substance: EVOLOCUMAB
     Indication: HYPERCHOLESTEROLAEMIA
     Dosage: 140 MG, Q2WK
     Route: 065

REACTIONS (9)
  - Ageusia [Recovered/Resolved]
  - Nasal obstruction [Unknown]
  - Anosmia [Recovered/Resolved]
  - Sinusitis [Unknown]
  - Fall [Unknown]
  - Sneezing [Recovered/Resolved]
  - Rhinorrhoea [Unknown]
  - Ear discomfort [Recovered/Resolved]
  - Glucose tolerance impaired [Not Recovered/Not Resolved]

NARRATIVE: CASE EVENT DATE: 201712
